FAERS Safety Report 21685514 (Version 2)
Quarter: 2023Q1

REPORT INFORMATION
  Report Type: Spontaneous
  Country: US (occurrence: US)
  Receive Date: 20221206
  Receipt Date: 20230310
  Transmission Date: 20230418
  Serious: Yes (Other)
  Sender: FDA-Public Use
  Company Number: US-002147023-NVSC2022US281542

PATIENT
  Sex: Male
  Weight: 111 kg

DRUGS (2)
  1. PLUVICTO [Suspect]
     Active Substance: LUTETIUM LU-177 VIPIVOTIDE TETRAXETAN
     Indication: Hormone-refractory prostate cancer
     Dosage: 200 MCI, EVERY 6 WEEKS
     Route: 042
     Dates: start: 20220928, end: 20220928
  2. PLUVICTO [Suspect]
     Active Substance: LUTETIUM LU-177 VIPIVOTIDE TETRAXETAN
     Dosage: 200 MCI, EVERY 6 WEEKS
     Route: 042
     Dates: start: 20221108, end: 20221108

REACTIONS (3)
  - Hormone-refractory prostate cancer [Unknown]
  - Malignant neoplasm progression [Unknown]
  - Ill-defined disorder [Unknown]
